FAERS Safety Report 18495727 (Version 1)
Quarter: 2020Q4

REPORT INFORMATION
  Report Type: Spontaneous
  Country: GB (occurrence: GB)
  Receive Date: 20201112
  Receipt Date: 20201112
  Transmission Date: 20210114
  Serious: Yes (Other)
  Sender: FDA-Public Use
  Company Number: GB-STRIDES ARCOLAB LIMITED-2020SP013677

PATIENT
  Age: 16 Year
  Sex: Female

DRUGS (3)
  1. ABACAVIR. [Suspect]
     Active Substance: ABACAVIR
     Indication: PERINATAL HIV INFECTION
     Dosage: UNK
     Route: 065
  2. LAMIVUDINE. [Suspect]
     Active Substance: LAMIVUDINE
     Indication: PERINATAL HIV INFECTION
     Dosage: UNK
     Route: 065
  3. DOLUTEGRAVIR [Suspect]
     Active Substance: DOLUTEGRAVIR
     Indication: PERINATAL HIV INFECTION
     Dosage: UNK
     Route: 065

REACTIONS (6)
  - Secondary hypogonadism [Unknown]
  - Puberty [Unknown]
  - Nipple exudate bloody [Unknown]
  - Ovarian agenesis [Unknown]
  - Amenorrhoea [Unknown]
  - Infertility female [Unknown]
